FAERS Safety Report 12572607 (Version 18)
Quarter: 2016Q4

REPORT INFORMATION
  Report Type: Report from Study
  Country: CA (occurrence: CA)
  Receive Date: 20160720
  Receipt Date: 20161026
  Transmission Date: 20170207
  Serious: Yes (Hospitalization, Other)
  Sender: FDA-Public Use
  Company Number: CA-ROCHE-1779183

PATIENT
  Age: 45 Year
  Sex: Male
  Weight: 102 kg

DRUGS (10)
  1. METHYLPREDNISOLONE. [Concomitant]
     Active Substance: METHYLPREDNISOLONE
     Indication: PREMEDICATION
     Route: 042
     Dates: start: 20160617
  2. ACETAMINOPHEN. [Concomitant]
     Active Substance: ACETAMINOPHEN
     Indication: PREMEDICATION
     Route: 048
     Dates: start: 20160617
  3. PANTOPRAZOLE [Concomitant]
     Active Substance: PANTOPRAZOLE SODIUM
  4. DECADRON [Concomitant]
     Active Substance: DEXAMETHASONE
  5. FRAGMIN [Suspect]
     Active Substance: DALTEPARIN SODIUM
     Indication: PRODUCT USED FOR UNKNOWN INDICATION
     Route: 065
  6. DIPHENHYDRAMINE. [Concomitant]
     Active Substance: DIPHENHYDRAMINE
     Indication: PREMEDICATION
     Route: 048
     Dates: start: 20160617
  7. KEPPRA [Concomitant]
     Active Substance: LEVETIRACETAM
  8. TEMODAL [Suspect]
     Active Substance: TEMOZOLOMIDE
     Indication: PRODUCT USED FOR UNKNOWN INDICATION
     Route: 048
  9. AVASTIN [Suspect]
     Active Substance: BEVACIZUMAB
     Indication: BRAIN NEOPLASM MALIGNANT
     Route: 042
     Dates: start: 20160617, end: 20161014
  10. APO-SULFATRIM [Concomitant]
     Active Substance: SULFAMETHOXAZOLE\TRIMETHOPRIM

REACTIONS (42)
  - Eosinophil percentage decreased [Not Recovered/Not Resolved]
  - Dizziness [Recovered/Resolved]
  - Platelet count decreased [Recovered/Resolved]
  - Increased tendency to bruise [Not Recovered/Not Resolved]
  - Weight decreased [Unknown]
  - Epistaxis [Recovered/Resolved]
  - Coagulopathy [Not Recovered/Not Resolved]
  - Lymphocyte percentage decreased [Not Recovered/Not Resolved]
  - Lymphocyte count decreased [Not Recovered/Not Resolved]
  - Body temperature decreased [Unknown]
  - Dysgeusia [Not Recovered/Not Resolved]
  - Peripheral swelling [Recovered/Resolved]
  - Swelling [Unknown]
  - Joint swelling [Unknown]
  - Micturition frequency decreased [Unknown]
  - Heart rate increased [Unknown]
  - Fatigue [Not Recovered/Not Resolved]
  - Alanine aminotransferase increased [Unknown]
  - Decreased appetite [Unknown]
  - Dehydration [Unknown]
  - Dyspnoea exertional [Not Recovered/Not Resolved]
  - Device occlusion [Unknown]
  - Blood pressure diastolic increased [Unknown]
  - Urobilinogen urine increased [Unknown]
  - Ear discomfort [Unknown]
  - Peripheral swelling [Unknown]
  - Intracranial pressure increased [Not Recovered/Not Resolved]
  - Rash [Unknown]
  - Paraesthesia [Unknown]
  - Abdominal distension [Not Recovered/Not Resolved]
  - Neutrophil percentage increased [Not Recovered/Not Resolved]
  - Injection site haemorrhage [Unknown]
  - Red blood cell count decreased [Not Recovered/Not Resolved]
  - Vertigo [Recovered/Resolved]
  - Haematocrit decreased [Not Recovered/Not Resolved]
  - Mean cell volume increased [Recovered/Resolved]
  - Haemoglobin decreased [Unknown]
  - Hypotension [Unknown]
  - Blood pressure fluctuation [Unknown]
  - Heart rate irregular [Unknown]
  - Eosinophil count decreased [Not Recovered/Not Resolved]
  - Decreased appetite [Not Recovered/Not Resolved]

NARRATIVE: CASE EVENT DATE: 20160617
